FAERS Safety Report 6455657-0 (Version None)
Quarter: 2009Q4

REPORT INFORMATION
  Report Type: 
  Country: None (occurrence: None)
  Receive Date: 20091125
  Receipt Date: 20090910
  Transmission Date: 20100525
  Serious: No
  Sender: FDA-Public Use
  Company Number: US-ABBOTT-09P-163-0597146-00

PATIENT
  Sex: Male
  Weight: 88.984 kg

DRUGS (8)
  1. SIMCOR [Suspect]
     Indication: BLOOD CHOLESTEROL INCREASED
     Dosage: 1 - 500/20MG TABLET
     Route: 048
     Dates: start: 20090825, end: 20090825
  2. LISINOPRIL [Concomitant]
     Indication: HYPERTENSION
     Route: 048
  3. METOPROLOL TARTRATE [Concomitant]
     Indication: HYPERTENSION
     Route: 048
  4. DIGOXIN [Concomitant]
     Indication: DRUG USE FOR UNKNOWN INDICATION
     Route: 048
  5. WARFARIN SODIUM [Concomitant]
     Indication: ANTICOAGULANT THERAPY
     Dosage: ALTERNATING DOSE OF 6MG AND 7MG
     Route: 048
  6. OMEPRAZOLE [Concomitant]
     Indication: DYSPEPSIA
     Route: 048
  7. FISH OIL OMEGA3 [Concomitant]
     Indication: DRUG USE FOR UNKNOWN INDICATION
     Route: 048
  8. EQUATE MULTIVITAMIN [Concomitant]
     Indication: DRUG USE FOR UNKNOWN INDICATION
     Route: 048

REACTIONS (7)
  - HOT FLUSH [None]
  - HYPERHIDROSIS [None]
  - INCORRECT DRUG ADMINISTRATION DURATION [None]
  - MIDDLE INSOMNIA [None]
  - PALPITATIONS [None]
  - PRURITUS [None]
  - SKIN BURNING SENSATION [None]
